FAERS Safety Report 14153396 (Version 2)
Quarter: 2019Q3

REPORT INFORMATION
  Report Type: Spontaneous
  Country: US (occurrence: US)
  Receive Date: 20171102
  Receipt Date: 20190924
  Transmission Date: 20191004
  Serious: No
  Sender: FDA-Public Use
  Company Number: US-SA-2017SA150536

PATIENT
  Age: 61 Year
  Sex: Female

DRUGS (2)
  1. PRALUENT [Suspect]
     Active Substance: ALIROCUMAB
     Indication: HYPERLIPIDAEMIA
     Dosage: 75 MG,QOW
     Route: 058
     Dates: start: 20170117
  2. REPATHA [Concomitant]
     Active Substance: EVOLOCUMAB
     Dosage: UNK UNK,UNK
     Route: 065
     Dates: start: 201612

REACTIONS (4)
  - Vertigo [Unknown]
  - Motion sickness [Unknown]
  - Dizziness [Unknown]
  - Product dose omission [Unknown]

NARRATIVE: CASE EVENT DATE: 2017
